FAERS Safety Report 21634507 (Version 1)
Quarter: 2022Q4

REPORT INFORMATION
  Report Type: Spontaneous
  Country: US (occurrence: None)
  Receive Date: 20221123
  Receipt Date: 20221123
  Transmission Date: 20230113
  Serious: Yes (Other)
  Sender: FDA-Public Use
  Company Number: None

PATIENT
  Age: 72 Year
  Sex: Female
  Weight: 71.2 kg

DRUGS (1)
  1. INJECTAFER [Suspect]
     Active Substance: FERRIC CARBOXYMALTOSE
     Indication: Iron deficiency anaemia
     Dosage: OTHER FREQUENCY : WEEKLY;?
     Route: 042
     Dates: start: 20221122

REACTIONS (2)
  - Infusion related reaction [None]
  - Rash erythematous [None]

NARRATIVE: CASE EVENT DATE: 20221122
